FAERS Safety Report 4683795-1 (Version None)
Quarter: 2005Q2

REPORT INFORMATION
  Report Type: 
  Country: None (occurrence: None)
  Receive Date: 20050602
  Receipt Date: 20050307
  Transmission Date: 20051028
  Serious: No
  Sender: FDA-Public Use
  Company Number: 200421182BWH

PATIENT
  Age: 52 Year
  Sex: Male

DRUGS (1)
  1. LEVITRA [Suspect]
     Dosage: 30 MG, TOTAL DAILY, ORAL
     Route: 048
     Dates: start: 20041214

REACTIONS (2)
  - NO ADVERSE DRUG EFFECT [None]
  - ROAD TRAFFIC ACCIDENT [None]
